FAERS Safety Report 6930128-3 (Version None)
Quarter: 2010Q3

REPORT INFORMATION
  Report Type: 
  Country: None (occurrence: None)
  Receive Date: 20100818
  Receipt Date: 20100811
  Transmission Date: 20110219
  Serious: Yes (Other)
  Sender: FDA-Public Use
  Company Number: DE-SANOFI-AVENTIS-2010SA004815

PATIENT
  Age: 53 Year
  Sex: Female

DRUGS (11)
  1. ENOXAPARIN SODIUM [Suspect]
     Indication: PULMONARY EMBOLISM
     Route: 058
     Dates: start: 20100106, end: 20100112
  2. WARFARIN SODIUM [Suspect]
     Indication: PULMONARY EMBOLISM
     Route: 048
     Dates: start: 20100108, end: 20100114
  3. UNACID PD ORAL [Concomitant]
     Indication: PNEUMONIA
     Route: 048
     Dates: start: 20100105, end: 20100112
  4. KLACID [Concomitant]
     Indication: PNEUMONIA
     Route: 048
     Dates: start: 20100105, end: 20100108
  5. NOVAMIN [Concomitant]
     Route: 048
     Dates: start: 20100105, end: 20100112
  6. LEVOTHYROXINE SODIUM [Concomitant]
     Indication: HYPOTHYROIDISM
     Route: 048
  7. CONCOR [Concomitant]
     Route: 048
  8. ENALAPRIL MALEATE [Concomitant]
     Route: 048
  9. TRAMAL [Concomitant]
     Route: 048
     Dates: start: 20100105, end: 20100112
  10. NULYTELY [Concomitant]
     Indication: CONSTIPATION PROPHYLAXIS
     Route: 048
     Dates: start: 20100105, end: 20100108
  11. EMBOLEX [Concomitant]
     Route: 058
     Dates: start: 20100105, end: 20100106

REACTIONS (1)
  - HEPATITIS [None]
